FAERS Safety Report 7864624-1 (Version None)
Quarter: 2011Q4

REPORT INFORMATION
  Report Type: 
  Country: None (occurrence: None)
  Receive Date: 20111028
  Receipt Date: 20111019
  Transmission Date: 20120403
  Serious: Yes (Hospitalization)
  Sender: FDA-Public Use
  Company Number: BR-B.I. PHARMACEUTICALS,INC./RIDGEFIELD-2011-BR-00214BR

PATIENT
  Age: 25 Year
  Sex: Female

DRUGS (2)
  1. BUSCODUO [Suspect]
     Indication: HEADACHE
  2. BUSCODUO [Suspect]
     Indication: ABDOMINAL PAIN
     Route: 048
     Dates: start: 20110208, end: 20110208

REACTIONS (3)
  - AMNIOTIC FLUID VOLUME DECREASED [None]
  - UTERINE HYPERTONUS [None]
  - FOETAL HEART RATE DECREASED [None]
